FAERS Safety Report 21915272 (Version 2)
Quarter: 2023Q1

REPORT INFORMATION
  Report Type: Spontaneous
  Country: US (occurrence: None)
  Receive Date: 20230126
  Receipt Date: 20230320
  Transmission Date: 20230417
  Serious: No
  Sender: FDA-Public Use
  Company Number: 2023A016947

PATIENT
  Age: 75 Year
  Sex: Male

DRUGS (2)
  1. TEZSPIRE [Suspect]
     Active Substance: TEZEPELUMAB-EKKO
     Indication: Asthma
     Dosage: 210.0MG ONCE/SINGLE ADMINISTRATION
     Route: 058
     Dates: start: 20221020, end: 20221020
  2. FASENRA [Suspect]
     Active Substance: BENRALIZUMAB
     Indication: Asthma
     Route: 058
     Dates: start: 2022

REACTIONS (3)
  - Chest discomfort [Recovered/Resolved]
  - Dizziness [Recovered/Resolved]
  - Dizziness [Recovered/Resolved]

NARRATIVE: CASE EVENT DATE: 20221020
